FAERS Safety Report 6254768-2 (Version None)
Quarter: 2009Q3

REPORT INFORMATION
  Report Type: 
  Country: None (occurrence: None)
  Receive Date: 20090702
  Receipt Date: 20090623
  Transmission Date: 20100115
  Serious: Yes (Life-Threatening, Hospitalization)
  Sender: FDA-Public Use
  Company Number: JP-ELI_LILLY_AND_COMPANY-JP200903000173

PATIENT
  Age: 82 Year
  Sex: Female

DRUGS (11)
  1. EVISTA [Suspect]
     Indication: OSTEOPOROSIS
     Dosage: 60 MG, DAILY (1/D)
     Route: 048
     Dates: start: 20070213, end: 20090407
  2. OMEPRAL [Interacting]
     Indication: REFLUX OESOPHAGITIS
     Dosage: 10 MG, DAILY (1/D)
     Route: 048
     Dates: start: 20070124
  3. ARTIST [Concomitant]
     Dosage: 1.25 MG, DAILY (1/D)
     Route: 048
     Dates: start: 20090108
  4. LASIX [Concomitant]
     Dosage: 20 MG, DAILY (1/D)
     Route: 048
     Dates: start: 20090108
  5. DIGOXIN [Concomitant]
     Dosage: 0.25 MG, DAILY (1/D)
     Route: 048
     Dates: start: 20090108
  6. MAGMITT [Concomitant]
     Dosage: 500 MG, DAILY (1/D)
     Route: 048
     Dates: start: 20090108
  7. YODEL [Concomitant]
     Dosage: 10 MG, DAILY (1/D)
     Route: 048
     Dates: start: 20090108
  8. PURSENNID [Concomitant]
     Dosage: 2 D/F, DAILY (1/D)
     Route: 048
     Dates: start: 20080409
  9. VITAMEDIN [Concomitant]
     Dosage: 50 MG, DAILY (1/D)
     Route: 048
     Dates: start: 20090108
  10. ALDACTONE [Concomitant]
     Dosage: 12.5 MG, DAILY (1/D)
     Route: 048
     Dates: start: 20090108, end: 20090615
  11. HERBAL PREPARATION [Concomitant]
     Dosage: 2.5 G, 2/D
     Route: 048
     Dates: start: 20080924

REACTIONS (3)
  - DRUG INTERACTION [None]
  - OEDEMA PERIPHERAL [None]
  - PLATELET COUNT DECREASED [None]
